FAERS Safety Report 10537573 (Version 1)
Quarter: 2014Q4

REPORT INFORMATION
  Report Type: Spontaneous
  Country: GB (occurrence: None)
  Receive Date: 20141021
  Receipt Date: 20141021
  Transmission Date: 20150529
  Serious: Yes (Death, Life-Threatening, Hospitalization)
  Sender: FDA-Public Use
  Company Number: INT_00479_2014

PATIENT
  Age: 53 Year
  Sex: Female

DRUGS (2)
  1. PEMETREXED [Concomitant]
     Active Substance: PEMETREXED
  2. CISPLATIN. [Suspect]
     Active Substance: CISPLATIN
     Indication: ADENOCARCINOMA
     Dosage: (ONE DOSE, DF)

REACTIONS (4)
  - Aortic occlusion [None]
  - Cardiac arrest [None]
  - Peripheral ischaemia [None]
  - Sepsis [None]
